FAERS Safety Report 7629592-6 (Version None)
Quarter: 2011Q3

REPORT INFORMATION
  Report Type: 
  Country: None (occurrence: None)
  Receive Date: 20110722
  Receipt Date: 20110713
  Transmission Date: 20111222
  Serious: Yes (Hospitalization)
  Sender: FDA-Public Use
  Company Number: US-ASTRAZENECA-2011SE42077

PATIENT
  Age: 67 Year
  Sex: Male
  Weight: 108.9 kg

DRUGS (10)
  1. VALIUM [Concomitant]
  2. SPIRONOLACTONE [Concomitant]
  3. PRISTIQ [Concomitant]
  4. TRICOR [Concomitant]
  5. FUROSEMIDE [Concomitant]
  6. FLUID PILL [Concomitant]
  7. HYDROCODONE BITARTRATE [Concomitant]
     Dosage: PRN
  8. LOVAZA [Concomitant]
  9. SEROQUEL XR [Suspect]
     Indication: DEPRESSION
     Route: 048
     Dates: start: 20090101
  10. WELLBUTRIN [Concomitant]

REACTIONS (7)
  - SPINAL FUSION SURGERY [None]
  - THERAPEUTIC PROCEDURE [None]
  - SURGERY [None]
  - NECK EXPLORATION [None]
  - INTERNAL FIXATION OF SPINE [None]
  - THERAPEUTIC RESPONSE UNEXPECTED [None]
  - BLOOD TRIGLYCERIDES INCREASED [None]
